FAERS Safety Report 13370879 (Version 1)
Quarter: 2017Q1

REPORT INFORMATION
  Report Type: Spontaneous
  Country: US (occurrence: US)
  Receive Date: 20170324
  Receipt Date: 20170324
  Transmission Date: 20170429
  Serious: Yes (Death, Other)
  Sender: FDA-Public Use
  Company Number: US-UCBSA-2017011577

PATIENT
  Age: 15 Year

DRUGS (1)
  1. KEPPRA [Suspect]
     Active Substance: LEVETIRACETAM
     Indication: PRODUCT USED FOR UNKNOWN INDICATION
     Dosage: 750 MG, 2X/DAY (BID)
     Dates: end: 201703

REACTIONS (3)
  - Completed suicide [Fatal]
  - Depression [Unknown]
  - Bipolar disorder [Unknown]

NARRATIVE: CASE EVENT DATE: 201703
